FAERS Safety Report 19247252 (Version 1)
Quarter: 2021Q2

REPORT INFORMATION
  Report Type: Spontaneous
  Country: DE (occurrence: DE)
  Receive Date: 20210512
  Receipt Date: 20210512
  Transmission Date: 20210717
  Serious: Yes (Life-Threatening, Hospitalization)
  Sender: FDA-Public Use
  Company Number: DE-TEVA-2021-DE-1909040

PATIENT
  Age: 60 Year
  Sex: Female

DRUGS (5)
  1. PREDNISOLONE. [Suspect]
     Active Substance: PREDNISOLONE
     Dosage: 150 MG, AM 02?FEB?2021
  2. CARBOPLATIN. [Suspect]
     Active Substance: CARBOPLATIN
     Dosage: SIXTH CYCLE ON 02?FEB?2021
     Route: 065
  3. TELMISARTAN. [Concomitant]
     Active Substance: TELMISARTAN
     Dosage: 40 MILLIGRAM DAILY; 1?0?0?0
  4. ETOPOSIDE. [Suspect]
     Active Substance: ETOPOSIDE
     Dosage: SIXTH CYCLE ON 02?FEB?2021
     Route: 065
  5. APIXABAN [Concomitant]
     Active Substance: APIXABAN
     Dosage: 10 MILLIGRAM DAILY; 1?0?1?0

REACTIONS (5)
  - Tachypnoea [Unknown]
  - Tachycardia [Unknown]
  - Hyperglycaemia [Unknown]
  - Hypertension [Unknown]
  - Dyspnoea [Unknown]
